FAERS Safety Report 9438975 (Version 1)
Quarter: 2013Q3

REPORT INFORMATION
  Report Type: Spontaneous
  Country: AT (occurrence: AT)
  Receive Date: 20130802
  Receipt Date: 20130802
  Transmission Date: 20140515
  Serious: Yes (Death)
  Sender: FDA-Public Use
  Company Number: PHHY2013AT082697

PATIENT
  Age: 88 Year
  Sex: Female

DRUGS (1)
  1. EBETREXAT [Suspect]
     Dosage: 15 MG, PER DAY
     Route: 048

REACTIONS (2)
  - Multi-organ failure [Fatal]
  - Overdose [Fatal]
